FAERS Safety Report 6193929-8 (Version None)
Quarter: 2009Q2

REPORT INFORMATION
  Report Type: 
  Country: None (occurrence: None)
  Receive Date: 20090518
  Receipt Date: 20090505
  Transmission Date: 20091009
  Serious: Yes (Other)
  Sender: FDA-Public Use
  Company Number: PHHY2009FI18003

PATIENT

DRUGS (1)
  1. FEMAR [Suspect]
     Dosage: 2.5 MG, QD
     Route: 048

REACTIONS (2)
  - BACK PAIN [None]
  - SPINAL DEFORMITY [None]
